FAERS Safety Report 12962788 (Version 1)
Quarter: 2016Q4

REPORT INFORMATION
  Report Type: Spontaneous
  Country: FR (occurrence: FR)
  Receive Date: 20161121
  Receipt Date: 20161121
  Transmission Date: 20170207
  Serious: Yes (Other)
  Sender: FDA-Public Use
  Company Number: FR-ROCHE-1855557

PATIENT
  Age: 69 Year
  Sex: Male

DRUGS (10)
  1. MABTHERA [Suspect]
     Active Substance: RITUXIMAB
     Indication: WALDENSTROM^S MACROGLOBULINAEMIA
     Route: 065
     Dates: start: 201001, end: 201505
  2. VELCADE [Suspect]
     Active Substance: BORTEZOMIB
     Indication: WALDENSTROM^S MACROGLOBULINAEMIA
     Dosage: 9 CYCLES
     Route: 065
     Dates: start: 201001, end: 201101
  3. ZELITREX [Concomitant]
     Active Substance: VALACYCLOVIR HYDROCHLORIDE
     Route: 048
  4. MOPRAL [Concomitant]
     Active Substance: OMEPRAZOLE SODIUM
     Route: 048
  5. DEXAMETHASONE. [Suspect]
     Active Substance: DEXAMETHASONE
     Indication: WALDENSTROM^S MACROGLOBULINAEMIA
     Dosage: 9 CYCLES
     Route: 065
     Dates: start: 201001, end: 201101
  6. IMBRUVICA [Concomitant]
     Active Substance: IBRUTINIB
     Route: 048
  7. BENDAMUSTINE [Suspect]
     Active Substance: BENDAMUSTINE
     Indication: WALDENSTROM^S MACROGLOBULINAEMIA
     Dosage: 8 CYCLES
     Route: 065
     Dates: start: 2011
  8. TRIATEC (FRANCE) [Concomitant]
     Active Substance: RAMIPRIL
     Route: 048
  9. BACTRIM [Concomitant]
     Active Substance: SULFAMETHOXAZOLE\TRIMETHOPRIM
     Route: 048
  10. IDELALISIB [Concomitant]
     Active Substance: IDELALISIB

REACTIONS (3)
  - Desmoid tumour [Not Recovered/Not Resolved]
  - Product use issue [Unknown]
  - Off label use [Unknown]

NARRATIVE: CASE EVENT DATE: 201508
